FAERS Safety Report 9760153 (Version 1)
Quarter: 2013Q4

REPORT INFORMATION
  Report Type: Spontaneous
  Country: SE (occurrence: None)
  Receive Date: 20131212
  Receipt Date: 20131212
  Transmission Date: 20140711
  Serious: Yes (Hospitalization)
  Sender: FDA-Public Use
  Company Number: 2013AP010324

PATIENT
  Age: 17 Year
  Sex: Male

DRUGS (2)
  1. OLANZAPINE (OLANZAPINE) [Suspect]
     Indication: BIPOLAR DISORDER
     Route: 048
  2. SEMISODIUM VALPROATE [Concomitant]

REACTIONS (4)
  - Rhabdomyolysis [None]
  - Renal failure [None]
  - Dermatitis bullous [None]
  - Hepatic enzyme increased [None]
